FAERS Safety Report 17224334 (Version 1)
Quarter: 2020Q1

REPORT INFORMATION
  Report Type: Spontaneous
  Country: ES (occurrence: ES)
  Receive Date: 20200102
  Receipt Date: 20200102
  Transmission Date: 20200409
  Serious: Yes (Other)
  Sender: FDA-Public Use
  Company Number: ES-SAMSUNG BIOEPIS-SB-2019-39626

PATIENT
  Age: 58 Year
  Sex: Male

DRUGS (1)
  1. ADALIMUMAB (2906A) [Suspect]
     Active Substance: ADALIMUMAB
     Indication: LYMPHADENITIS
     Dosage: THE PATIENT STARTED THE TREATMENT 8 MONTHS AGO, RECEIVED A ROAD EVERY MONTH
     Route: 065
     Dates: start: 201901, end: 201909

REACTIONS (4)
  - Cardiac failure [Recovering/Resolving]
  - Product use in unapproved indication [Unknown]
  - Pulmonary oedema [Recovering/Resolving]
  - Product use issue [Unknown]

NARRATIVE: CASE EVENT DATE: 20190917
